FAERS Safety Report 18834194 (Version 1)
Quarter: 2021Q1

REPORT INFORMATION
  Report Type: Spontaneous
  Country: US (occurrence: US)
  Receive Date: 20210203
  Receipt Date: 20210203
  Transmission Date: 20210419
  Serious: Yes (Other)
  Sender: FDA-Public Use
  Company Number: None

PATIENT
  Age: 58 Year
  Sex: Female
  Weight: 86.2 kg

DRUGS (17)
  1. GLIMEPIRIDE 2MG [Concomitant]
     Active Substance: GLIMEPIRIDE
     Dates: start: 20200205
  2. NORCO 7.5?325MG [Concomitant]
     Dates: start: 20191021, end: 20200902
  3. ZOFRAN [Concomitant]
     Active Substance: ONDANSETRON HYDROCHLORIDE
     Dates: start: 20181007
  4. TERCONAZOLE 0.4% VAGINAL CREAM [Concomitant]
     Dates: start: 20200413, end: 20201224
  5. MAVYRET [Suspect]
     Active Substance: GLECAPREVIR\PIBRENTASVIR
     Indication: HEPATITIS C
     Route: 048
  6. AMITRIPTYLINE 25MG [Concomitant]
     Active Substance: AMITRIPTYLINE
     Dates: start: 20190606
  7. DULOXETINE 60MG [Concomitant]
     Active Substance: DULOXETINE
     Dates: start: 20181008
  8. LISINOPRIL?HCTZ 20?25MG [Concomitant]
     Dates: start: 20181005
  9. BASAGLAR 100UNIT/ML KWIKPEN [Concomitant]
     Dates: start: 20181005
  10. BACLOFEN 10MG [Concomitant]
     Active Substance: BACLOFEN
     Dates: start: 20190606
  11. TOPIRAMATE 50MG [Concomitant]
     Active Substance: TOPIRAMATE
     Dates: start: 20181029
  12. NOVOLOG 100UNIT/ML FLEXPEN [Concomitant]
     Dates: start: 20191217
  13. PANTOPRAZOLE 40MG [Concomitant]
     Active Substance: PANTOPRAZOLE SODIUM
     Dates: start: 20200316, end: 20210106
  14. ALBUTEROL INHALER [Concomitant]
     Active Substance: ALBUTEROL
     Dates: start: 20191121
  15. GABAPENTIN 800MG [Concomitant]
     Active Substance: GABAPENTIN
     Dates: start: 20190805
  16. BUSPIRONE 10MG [Concomitant]
     Dates: start: 20190507
  17. CARVEDILOL 12.5MG [Concomitant]
     Active Substance: CARVEDILOL
     Dates: start: 20191121

REACTIONS (2)
  - Nodule [None]
  - Erythema nodosum [None]

NARRATIVE: CASE EVENT DATE: 20200609
